FAERS Safety Report 7299637-4 (Version None)
Quarter: 2011Q1

REPORT INFORMATION
  Report Type: 
  Country: None (occurrence: None)
  Receive Date: 20110209
  Receipt Date: 20110131
  Transmission Date: 20110831
  Serious: Yes (Hospitalization)
  Sender: FDA-Public Use
  Company Number: 1000018611

PATIENT
  Age: 80 Year
  Sex: Male

DRUGS (2)
  1. DILTIAZEM [Suspect]
  2. LOVASTATIN [Suspect]

REACTIONS (5)
  - HYPERKALAEMIA [None]
  - BRADYARRHYTHMIA [None]
  - CIRCULATORY COLLAPSE [None]
  - RHABDOMYOLYSIS [None]
  - DEPRESSED LEVEL OF CONSCIOUSNESS [None]
